FAERS Safety Report 9346303 (Version 1)
Quarter: 2013Q2

REPORT INFORMATION
  Report Type: Spontaneous
  Country: US (occurrence: US)
  Receive Date: 20130613
  Receipt Date: 20130613
  Transmission Date: 20140414
  Serious: No
  Sender: FDA-Public Use
  Company Number: US-US-EMD SERONO, INC.-7021742

PATIENT
  Sex: Male

DRUGS (1)
  1. ZORBTIVE [Suspect]
     Indication: SHORT-BOWEL SYNDROME
     Dates: start: 201007, end: 20100917

REACTIONS (2)
  - Gait disturbance [Not Recovered/Not Resolved]
  - Local swelling [Not Recovered/Not Resolved]
